FAERS Safety Report 20382783 (Version 1)
Quarter: 2022Q1

REPORT INFORMATION
  Report Type: Spontaneous
  Country: RU (occurrence: None)
  Receive Date: 20220127
  Receipt Date: 20220127
  Transmission Date: 20220423
  Serious: Yes (Other)
  Sender: FDA-Public Use
  Company Number: 2022A035347

PATIENT
  Age: 56 Year
  Sex: Female

DRUGS (1)
  1. SYMBICORT [Suspect]
     Active Substance: BUDESONIDE\FORMOTEROL FUMARATE DIHYDRATE
     Indication: Asthma
     Dosage: 160/4.5 MCG\DOSE, UNKNOWN FREQUENCY UNKNOWN
     Route: 055
     Dates: start: 20220117

REACTIONS (2)
  - Asphyxia [Recovered/Resolved]
  - Throat irritation [Recovered/Resolved]
